FAERS Safety Report 9164449 (Version 1)
Quarter: 2013Q1

REPORT INFORMATION
  Report Type: Spontaneous
  Country: GB (occurrence: None)
  Receive Date: 20130226
  Receipt Date: 20130226
  Transmission Date: 20140127
  Serious: No
  Sender: FDA-Public Use
  Company Number: 1597281

PATIENT
  Age: 10 Year
  Sex: Male

DRUGS (4)
  1. METHOTREXATE [Suspect]
     Indication: JUVENILE IDIOPATHIC ARTHRITIS
     Dosage: 17.5 MG MILLIGRAMS (S), UNKNOWN, SUBCUTANEOUS
  2. TOCILIZUMAB [Suspect]
     Route: 058
  3. PREDNISOLONE [Suspect]
     Dosage: UNKNOWN, UNKNOWN, ORAL
     Route: 048
  4. NAPROXEN) [Concomitant]

REACTIONS (3)
  - Muscle abscess [None]
  - Local reaction [None]
  - Immunosuppression [None]
